FAERS Safety Report 6902912-3 (Version None)
Quarter: 2010Q3

REPORT INFORMATION
  Report Type: 
  Country: None (occurrence: None)
  Receive Date: 20100803
  Receipt Date: 20081002
  Transmission Date: 20110219
  Serious: No
  Sender: FDA-Public Use
  Company Number: US-PFIZER INC-2008037603

PATIENT
  Sex: Male
  Weight: 81.6 kg

DRUGS (3)
  1. LYRICA [Suspect]
     Indication: NEUROPATHY PERIPHERAL
     Dates: start: 20080417
  2. CARDIAC THERAPY [Concomitant]
  3. ATIVAN [Concomitant]

REACTIONS (9)
  - ANXIETY [None]
  - CRYING [None]
  - DEPRESSION [None]
  - HYPOAESTHESIA [None]
  - INSOMNIA [None]
  - MALAISE [None]
  - PERIPHERAL COLDNESS [None]
  - PERSONALITY CHANGE [None]
  - WEIGHT DECREASED [None]
